FAERS Safety Report 16235212 (Version 1)
Quarter: 2019Q2

REPORT INFORMATION
  Report Type: Spontaneous
  Country: IT (occurrence: IT)
  Receive Date: 20190424
  Receipt Date: 20190424
  Transmission Date: 20190711
  Serious: Yes (Hospitalization)
  Sender: FDA-Public Use
  Company Number: IT-MYLANLABS-2019M1037580

PATIENT
  Age: 82 Year
  Sex: Female

DRUGS (6)
  1. CARDURA [Suspect]
     Active Substance: DOXAZOSIN MESYLATE
     Indication: HYPOTENSION
     Dosage: 4 MILLIGRAM, QD
     Route: 048
     Dates: end: 20181102
  2. BISOPROLOL [Suspect]
     Active Substance: BISOPROLOL
     Indication: HYPOTENSION
     Dosage: 2.5 MILLIGRAM, QD
     Route: 048
     Dates: end: 20181102
  3. BISOPROLOL [Suspect]
     Active Substance: BISOPROLOL
     Dosage: UNK
     Route: 048
  4. CANDESARTAN. [Suspect]
     Active Substance: CANDESARTAN
     Indication: HYPOTENSION
     Dosage: 32 MILLIGRAM, QD
     Route: 048
     Dates: end: 20181102
  5. TORVAST [Concomitant]
     Active Substance: ATORVASTATIN
     Indication: HYPERLIPIDAEMIA
     Dosage: 10 MILLIGRAM
     Route: 048
  6. CARDIOASPIRIN [Concomitant]
     Active Substance: ASPIRIN
     Indication: CARDIOMYOPATHY
     Dosage: 100 MILLIGRAM
     Route: 048

REACTIONS (2)
  - Blood pressure increased [Recovered/Resolved]
  - Dizziness [Recovered/Resolved]

NARRATIVE: CASE EVENT DATE: 20181001
